FAERS Safety Report 20533467 (Version 2)
Quarter: 2022Q1

REPORT INFORMATION
  Report Type: Spontaneous
  Country: JP (occurrence: JP)
  Receive Date: 20220301
  Receipt Date: 20220323
  Transmission Date: 20220423
  Serious: Yes (Hospitalization, Other)
  Sender: FDA-Public Use
  Company Number: JP-NBI-S202200035BIPI

PATIENT
  Age: 48 Year
  Sex: Male
  Weight: 60.1 kg

DRUGS (1)
  1. MICARDIS [Suspect]
     Active Substance: TELMISARTAN
     Indication: Product used for unknown indication
     Route: 048

REACTIONS (4)
  - COVID-19 [Recovered/Resolved]
  - Coronavirus pneumonia [Recovered/Resolved]
  - Shunt occlusion [Recovered/Resolved]
  - Angiotensin II increased [Unknown]

NARRATIVE: CASE EVENT DATE: 20210401
